FAERS Safety Report 4465689-X (Version None)
Quarter: 2004Q4

REPORT INFORMATION
  Report Type: 
  Country: None (occurrence: None)
  Receive Date: 20041004
  Receipt Date: 20020516
  Transmission Date: 20050328
  Serious: Yes (Hospitalization, Disabling, Other)
  Sender: FDA-Public Use
  Company Number: US-MERCK-0205USA02029

PATIENT
  Age: 49 Year
  Sex: Male
  Weight: 75 kg

DRUGS (3)
  1. LORCET-HD [Concomitant]
     Indication: PAIN
     Route: 048
  2. VIOXX [Suspect]
     Route: 048
  3. AMBIEN [Concomitant]
     Route: 048

REACTIONS (51)
  - ACTIVITIES OF DAILY LIVING IMPAIRED [None]
  - AMNESIA [None]
  - ANAEMIA [None]
  - ANGIOPATHY [None]
  - ANXIETY [None]
  - ARRHYTHMIA [None]
  - ARTHRALGIA [None]
  - ARTHRITIS BACTERIAL [None]
  - BACK INJURY [None]
  - BACK PAIN [None]
  - BLOOD UREA INCREASED [None]
  - CARDIAC MURMUR [None]
  - CEREBROVASCULAR ACCIDENT [None]
  - CHEST PAIN [None]
  - CHOLESTEROL GRANULOMA [None]
  - CHRONIC FATIGUE SYNDROME [None]
  - COUGH [None]
  - DEPRESSION [None]
  - DRUG DEPENDENCE [None]
  - DYSPNOEA [None]
  - EMOTIONAL DISTRESS [None]
  - ERYTHEMA [None]
  - ERYTHROPOIESIS ABNORMAL [None]
  - HEART RATE IRREGULAR [None]
  - HYPERLIPIDAEMIA [None]
  - HYPOACUSIS [None]
  - HYPOAESTHESIA [None]
  - INJURY [None]
  - INSOMNIA [None]
  - INTERVERTEBRAL DISC PROTRUSION [None]
  - IRON DEFICIENCY [None]
  - JOINT INJURY [None]
  - LABILE HYPERTENSION [None]
  - MIXED HYPERLIPIDAEMIA [None]
  - MUSCLE CRAMP [None]
  - NAIL DISORDER [None]
  - NAUSEA [None]
  - NEURITIS [None]
  - OEDEMA [None]
  - OSTEOARTHRITIS [None]
  - PAIN [None]
  - PAIN IN EXTREMITY [None]
  - POST PROCEDURAL COMPLICATION [None]
  - PROTEIN URINE PRESENT [None]
  - RADICULITIS [None]
  - RHINITIS ALLERGIC [None]
  - RHINORRHOEA [None]
  - SPHEROCYTIC ANAEMIA [None]
  - TACHYCARDIA [None]
  - URINARY SEDIMENT PRESENT [None]
  - WHITE BLOOD CELLS URINE POSITIVE [None]
